FAERS Safety Report 15578020 (Version 1)
Quarter: 2018Q4

REPORT INFORMATION
  Report Type: Spontaneous
  Country: IT (occurrence: IT)
  Receive Date: 20181102
  Receipt Date: 20181102
  Transmission Date: 20190205
  Serious: Yes (Hospitalization, Other)
  Sender: FDA-Public Use
  Company Number: IT-AUROBINDO-AUR-APL-2018-052892

PATIENT
  Age: 54 Year
  Sex: Female

DRUGS (2)
  1. SERTRALINE [Suspect]
     Active Substance: SERTRALINE HYDROCHLORIDE
     Indication: INTENTIONAL SELF-INJURY
     Dosage: 28 DOSAGE FORM IN TOTAL
     Route: 048
  2. PALEXIA [Suspect]
     Active Substance: TAPENTADOL HYDROCHLORIDE
     Indication: INTENTIONAL SELF-INJURY
     Dosage: 20 DOSAGE FORM IN TOTAL
     Route: 048

REACTIONS (5)
  - Tremor [Unknown]
  - Sopor [Unknown]
  - Intentional self-injury [Unknown]
  - Hypertonia [Unknown]
  - Intentional overdose [Unknown]

NARRATIVE: CASE EVENT DATE: 20180627
